FAERS Safety Report 21397513 (Version 1)
Quarter: 2022Q3

REPORT INFORMATION
  Report Type: Spontaneous
  Country: FR (occurrence: FR)
  Receive Date: 20220930
  Receipt Date: 20220930
  Transmission Date: 20221027
  Serious: Yes (Other)
  Sender: FDA-Public Use
  Company Number: None

PATIENT
  Age: 88 Year
  Sex: Male
  Weight: 61 kg

DRUGS (7)
  1. MVASI [Suspect]
     Active Substance: BEVACIZUMAB-AWWB
     Indication: Hepatocellular carcinoma
     Dosage: 870 MILLIGRAM, CYCLICAL
     Route: 042
     Dates: start: 20220224
  2. TECENTRIQ [Suspect]
     Active Substance: ATEZOLIZUMAB
     Indication: Hepatocellular carcinoma
     Dosage: 1200 MILLIGRAM, QD
     Route: 042
     Dates: start: 20220224
  3. SPIRONOLACTONE [Concomitant]
     Active Substance: SPIRONOLACTONE
     Dosage: UNK
  4. OMEPRAZOLE [Concomitant]
     Active Substance: OMEPRAZOLE
  5. CREON [Concomitant]
     Active Substance: PANCRELIPASE AMYLASE\PANCRELIPASE LIPASE\PANCRELIPASE PROTEASE
     Dosage: 25 000 U
  6. MOVICOL [Concomitant]
     Active Substance: POLYETHYLENE GLYCOL 3350\POTASSIUM CHLORIDE\SODIUM BICARBONATE\SODIUM CHLORIDE
  7. FUROSEMIDE [Concomitant]
     Active Substance: FUROSEMIDE
     Dosage: UNK

REACTIONS (25)
  - Ascites [Not Recovered/Not Resolved]
  - Oedema peripheral [Recovered/Resolved]
  - Myalgia [Recovered/Resolved]
  - Arthralgia [Recovered/Resolved]
  - Asthenia [Recovered/Resolved]
  - Dry skin [Recovered/Resolved]
  - Cough [Not Recovered/Not Resolved]
  - Diarrhoea [Recovered/Resolved]
  - Dyspnoea [Not Recovered/Not Resolved]
  - Increased appetite [Recovered/Resolved]
  - Chills [Recovered/Resolved]
  - Confusional state [Not Recovered/Not Resolved]
  - Confusional state [Recovered/Resolved]
  - Confusional state [Not Recovered/Not Resolved]
  - Pruritus [Recovered/Resolved]
  - Pruritus [Recovered/Resolved]
  - Stress [Not Recovered/Not Resolved]
  - Off label use [Unknown]
  - Dizziness [Recovered/Resolved]
  - Dizziness [Recovered/Resolved]
  - Vision blurred [Recovered/Resolved]
  - Constipation [Recovered/Resolved]
  - Decreased appetite [Recovered/Resolved]
  - Weight decreased [Recovered/Resolved]
  - Weight decreased [Not Recovered/Not Resolved]

NARRATIVE: CASE EVENT DATE: 20220224
